FAERS Safety Report 6717980-1 (Version None)
Quarter: 2010Q2

REPORT INFORMATION
  Report Type: 
  Country: None (occurrence: None)
  Receive Date: 20100510
  Receipt Date: 20100430
  Transmission Date: 20101027
  Serious: Yes (Other)
  Sender: FDA-Public Use
  Company Number: PHHY2010US28363

PATIENT
  Sex: Female

DRUGS (1)
  1. RECLAST [Suspect]
     Dosage: 5 MG, YEARLY
     Route: 042

REACTIONS (6)
  - FEELING ABNORMAL [None]
  - INFLUENZA LIKE ILLNESS [None]
  - MULTIPLE FRACTURES [None]
  - PAIN [None]
  - SPINAL DISORDER [None]
  - WEIGHT DECREASED [None]
